FAERS Safety Report 24015896 (Version 1)
Quarter: 2024Q2

REPORT INFORMATION
  Report Type: Spontaneous
  Country: CN (occurrence: CN)
  Receive Date: 20240626
  Receipt Date: 20240626
  Transmission Date: 20240716
  Serious: Yes (Disabling, Other)
  Sender: FDA-Public Use
  Company Number: CN-MYLANLABS-2024M1057401

PATIENT
  Age: 44 Year
  Sex: Male
  Weight: 67.3 kg

DRUGS (3)
  1. LIPITOR [Suspect]
     Active Substance: ATORVASTATIN CALCIUM
     Indication: Arterial stenosis
     Dosage: 40 MILLIGRAM, PM
     Route: 048
     Dates: start: 20240407, end: 20240529
  2. LIPITOR [Suspect]
     Active Substance: ATORVASTATIN CALCIUM
     Indication: Lipids abnormal
  3. LIPITOR [Suspect]
     Active Substance: ATORVASTATIN CALCIUM
     Indication: Arteriosclerosis

REACTIONS (1)
  - Male sexual dysfunction [Recovering/Resolving]

NARRATIVE: CASE EVENT DATE: 20240529
